FAERS Safety Report 16196519 (Version 2)
Quarter: 2019Q2

REPORT INFORMATION
  Report Type: Spontaneous
  Country: US (occurrence: US)
  Receive Date: 20190415
  Receipt Date: 20190502
  Transmission Date: 20190711
  Serious: Yes (Death)
  Sender: FDA-Public Use
  Company Number: US-ROCHE-2302048

PATIENT
  Age: 68 Year
  Sex: Male

DRUGS (1)
  1. ACTEMRA [Suspect]
     Active Substance: TOCILIZUMAB
     Indication: ARTHRITIS
     Dosage: ONGOING:UNKNOWN 0.9 M
     Route: 058
     Dates: start: 20140407

REACTIONS (1)
  - Death [Fatal]

NARRATIVE: CASE EVENT DATE: 20190206
